FAERS Safety Report 23258370 (Version 1)
Quarter: 2023Q4

REPORT INFORMATION
  Report Type: Spontaneous
  Country: US (occurrence: US)
  Receive Date: 20231204
  Receipt Date: 20231204
  Transmission Date: 20240110
  Serious: Yes (Hospitalization, Other)
  Sender: FDA-Public Use
  Company Number: US-MLMSERVICE-20231116-4669407-1

PATIENT

DRUGS (4)
  1. TRIAMCINOLONE ACETONIDE [Interacting]
     Active Substance: TRIAMCINOLONE ACETONIDE
     Indication: Arthralgia
     Dosage: 40 MILLIGRAM (FORMULATION: INJECTION)
     Route: 014
  2. DOLUTEGRAVIR [Interacting]
     Active Substance: DOLUTEGRAVIR
     Indication: HIV infection
     Dosage: UNK
     Route: 065
  3. COBICISTAT\DARUNAVIR ETHANOLATE [Interacting]
     Active Substance: COBICISTAT\DARUNAVIR ETHANOLATE
     Indication: HIV infection
     Dosage: UNK
     Route: 065
  4. DULAGLUTIDE [Concomitant]
     Active Substance: DULAGLUTIDE
     Indication: Type 2 diabetes mellitus
     Dosage: UNK
     Route: 065

REACTIONS (3)
  - Adrenal insufficiency [Recovering/Resolving]
  - Drug interaction [Recovering/Resolving]
  - Hyperglycaemia [Recovering/Resolving]
